FAERS Safety Report 21208770 (Version 1)
Quarter: 2022Q3

REPORT INFORMATION
  Report Type: Spontaneous
  Country: US (occurrence: None)
  Receive Date: 20220812
  Receipt Date: 20220812
  Transmission Date: 20221026
  Serious: Yes (Other)
  Sender: FDA-Public Use
  Company Number: None

PATIENT
  Age: 68 Year
  Sex: Female

DRUGS (4)
  1. PAXLOVID [Suspect]
     Active Substance: NIRMATRELVIR\RITONAVIR
     Indication: SARS-CoV-2 test positive
     Dosage: FREQUENCY : TWICE A DAY;?
     Route: 048
     Dates: start: 20220808, end: 20220809
  2. ONDANSETRON [Concomitant]
     Active Substance: ONDANSETRON
     Dates: start: 20220808
  3. LEVOTHYROXINE [Concomitant]
     Active Substance: LEVOTHYROXINE
  4. BACLOFEN [Concomitant]
     Active Substance: BACLOFEN

REACTIONS (2)
  - Confusional state [None]
  - Memory impairment [None]

NARRATIVE: CASE EVENT DATE: 20220809
